FAERS Safety Report 10401991 (Version 1)
Quarter: 2014Q3

REPORT INFORMATION
  Report Type: Spontaneous
  Country: US (occurrence: None)
  Receive Date: 20140820
  Receipt Date: 20140820
  Transmission Date: 20150326
  Serious: Yes (Other)
  Sender: FDA-Public Use
  Company Number: None

PATIENT
  Age: 40 Year
  Sex: Female
  Weight: 81.65 kg

DRUGS (1)
  1. ZYRTEC [Suspect]
     Active Substance: CETIRIZINE HYDROCHLORIDE
     Indication: MULTIPLE ALLERGIES
     Dosage: 1 TAB DAILY ONCE DAILY TAKEN BY MOUTH
     Route: 048
     Dates: start: 20130501, end: 20140819

REACTIONS (1)
  - Pruritus [None]

NARRATIVE: CASE EVENT DATE: 20140801
